FAERS Safety Report 6400506-X (Version None)
Quarter: 2009Q4

REPORT INFORMATION
  Report Type: 
  Country: None (occurrence: None)
  Receive Date: 20091013
  Receipt Date: 20091013
  Transmission Date: 20100525
  Serious: Yes (Hospitalization)
  Sender: FDA-Public Use
  Company Number: None

PATIENT
  Sex: Female
  Weight: 60.3284 kg

DRUGS (2)
  1. REGLAN [Suspect]
     Indication: COLONOSCOPY
     Dosage: 1 TAB 6 HOURS APART PO
     Route: 048
     Dates: start: 20091005, end: 20091005
  2. REGLAN [Suspect]
     Indication: PROPHYLAXIS OF NAUSEA AND VOMITING
     Dosage: 1 TAB 6 HOURS APART PO
     Route: 048
     Dates: start: 20091005, end: 20091005

REACTIONS (6)
  - ANGER [None]
  - ANXIETY DISORDER [None]
  - FEAR [None]
  - HEART RATE INCREASED [None]
  - PANIC ATTACK [None]
  - TREMOR [None]
